FAERS Safety Report 6251189-3 (Version None)
Quarter: 2009Q2

REPORT INFORMATION
  Report Type: 
  Country: None (occurrence: None)
  Receive Date: 20090626
  Receipt Date: 20090612
  Transmission Date: 20091009
  Serious: Yes (Death, Hospitalization)
  Sender: FDA-Public Use
  Company Number: 2009001784

PATIENT
  Age: 51 Year
  Sex: Female

DRUGS (7)
  1. ERLOTINIB [Suspect]
     Indication: NON-SMALL CELL LUNG CANCER
     Dosage: (150 MG, QD), ORAL
     Route: 048
     Dates: start: 20090513
  2. BEVACIZUMAB (INJECTION FOR INFUSION) [Suspect]
     Indication: NON-SMALL CELL LUNG CANCER
     Dosage: (900 MG,Q3W), INTRAVENOUS
     Route: 042
     Dates: start: 20081006
  3. PACLITAZEL (PACLITAXEL) (INJECTION FOR INFUSION) [Suspect]
     Indication: NON-SMALL CELL LUNG CANCER
     Dosage: INTRAVENOUS
     Route: 042
  4. CARBOPLATIN [Suspect]
     Indication: NON-SMALL CELL LUNG CANCER
     Dosage: INTRAVENOUS
     Route: 042
  5. OXYCONTIN [Concomitant]
  6. OXYCODONE HCL [Concomitant]
  7. DIAZEPAM [Concomitant]

REACTIONS (2)
  - HAEMOPTYSIS [None]
  - MUSCULOSKELETAL PAIN [None]
